FAERS Safety Report 5317499-9 (Version None)
Quarter: 2007Q2

REPORT INFORMATION
  Report Type: 
  Country: None (occurrence: None)
  Receive Date: 20070507
  Receipt Date: 20070503
  Transmission Date: 20071010
  Serious: Yes (Death, Hospitalization)
  Sender: FDA-Public Use
  Company Number: PHBS2007BR03356

PATIENT
  Age: 83 Year
  Sex: Female

DRUGS (12)
  1. LESCOL XL [Suspect]
     Indication: HYPERCHOLESTEROLAEMIA
     Dosage: 80 MG/D
     Route: 048
  2. LESCOL XL [Suspect]
     Dosage: 80 MG, Q48H
     Route: 048
  3. LESCOL XL [Suspect]
     Dosage: 80 MG/D
     Route: 048
  4. LESCOL [Suspect]
     Indication: HYPERCHOLESTEROLAEMIA
     Dosage: 20 MG, QD
     Route: 048
     Dates: start: 20000830
  5. LESCOL [Suspect]
     Dosage: 40 MG/D
     Route: 048
  6. CALTRATE [Concomitant]
     Dates: start: 19970101
  7. FLUOXETINE [Concomitant]
  8. OMEPRAZOLE [Concomitant]
     Dosage: 20 MG, QD
     Route: 048
     Dates: start: 20000830
  9. ISKEMIL [Concomitant]
     Dosage: 6 MG, QD
     Route: 048
  10. CAPTOPRIL [Concomitant]
     Dosage: 12.5 MG, BID
     Route: 048
  11. TRAVISCO [Concomitant]
     Dosage: 200 MG, QD
     Route: 048
  12. TANAKAN [Concomitant]

REACTIONS (4)
  - COMA [None]
  - SEPSIS [None]
  - SEPTIC SHOCK [None]
  - URINARY TRACT INFECTION [None]
